FAERS Safety Report 19135042 (Version 1)
Quarter: 2021Q2

REPORT INFORMATION
  Report Type: Not Available
  Country: US (occurrence: US)
  Receive Date: 20210414
  Receipt Date: 20210414
  Transmission Date: 20210717
  Serious: No
  Sender: FDA-Public Use
  Company Number: US-KINIKSA PHARMACEUTICALS LTD.-2021KPU000063

PATIENT
  Sex: Male

DRUGS (2)
  1. PREDNISONE. [Concomitant]
     Active Substance: PREDNISONE
     Indication: PRODUCT USED FOR UNKNOWN INDICATION
     Route: 065
  2. ARCALYST [Suspect]
     Active Substance: RILONACEPT
     Indication: PERICARDITIS
     Dosage: SDV
     Route: 058
     Dates: start: 20210112

REACTIONS (2)
  - Off label use [Unknown]
  - Asthenia [Unknown]
